FAERS Safety Report 5385025-4 (Version None)
Quarter: 2007Q3

REPORT INFORMATION
  Report Type: 
  Country: None (occurrence: None)
  Receive Date: 20070712
  Receipt Date: 20070703
  Transmission Date: 20080115
  Serious: Yes (Other)
  Sender: FDA-Public Use
  Company Number: PHBS2007NL08879

PATIENT
  Age: 10 Year
  Sex: Female

DRUGS (1)
  1. EXJADE [Suspect]
     Indication: CHELATION THERAPY
     Dosage: 500 MG, QD (20 MG/KG/D)
     Route: 048
     Dates: start: 20070312, end: 20070420

REACTIONS (2)
  - ABDOMINAL PAIN [None]
  - SPLENOMEGALY [None]
